FAERS Safety Report 26053728 (Version 1)
Quarter: 2025Q4

REPORT INFORMATION
  Report Type: Spontaneous
  Country: US (occurrence: US)
  Receive Date: 20251117
  Receipt Date: 20251117
  Transmission Date: 20260118
  Serious: No
  Sender: SANOFI AVENTIS
  Company Number: US-SA-2025SA340525

PATIENT
  Sex: Male
  Weight: 14.9 kg

DRUGS (1)
  1. DUPIXENT [Suspect]
     Active Substance: DUPILUMAB
     Indication: Eosinophilic oesophagitis
     Dosage: 200 MG, QOW
     Route: 058
     Dates: start: 202509

REACTIONS (4)
  - Nasal congestion [Unknown]
  - Ear infection [Unknown]
  - Ear haemorrhage [Unknown]
  - Ear discomfort [Unknown]

NARRATIVE: CASE EVENT DATE: 20251001
